FAERS Safety Report 7293342-6 (Version None)
Quarter: 2011Q1

REPORT INFORMATION
  Report Type: 
  Country: None (occurrence: None)
  Receive Date: 20110215
  Receipt Date: 20110201
  Transmission Date: 20110831
  Serious: Yes (Hospitalization)
  Sender: FDA-Public Use
  Company Number: TT-WATSON-2011-01839

PATIENT
  Age: 46 Year
  Sex: Male

DRUGS (1)
  1. PREDNISOLONE [Suspect]
     Indication: AUTOIMMUNE THROMBOCYTOPENIA
     Dosage: 60 MG, DAILY

REACTIONS (4)
  - DIABETES MELLITUS [None]
  - OSTEOPENIA [None]
  - HYPERGLYCAEMIC HYPEROSMOLAR NONKETOTIC SYNDROME [None]
  - FALSE POSITIVE INVESTIGATION RESULT [None]
